FAERS Safety Report 6677606-2 (Version None)
Quarter: 2010Q2

REPORT INFORMATION
  Report Type: 
  Country: None (occurrence: None)
  Receive Date: 20100412
  Receipt Date: 20100219
  Transmission Date: 20101027
  Serious: No
  Sender: FDA-Public Use
  Company Number: US-ALEXION-A201000200

PATIENT
  Sex: Male
  Weight: 80.7 kg

DRUGS (14)
  1. SOLIRIS [Suspect]
     Indication: PAROXYSMAL NOCTURNAL HAEMOGLOBINURIA
     Dosage: 600 MG, QW
     Route: 042
     Dates: start: 20070607, end: 20070627
  2. SOLIRIS [Suspect]
     Dosage: 900 MG, Q2W
     Route: 042
     Dates: start: 20070703
  3. DESFERAL                           /00062903/ [Concomitant]
     Dosage: 4X/W
  4. ATIVAN [Concomitant]
     Dosage: UNK
     Route: 048
  5. FOLIC ACID [Concomitant]
  6. POTASSIUM [Concomitant]
     Dosage: UNK
     Route: 048
  7. LASIX [Concomitant]
     Dosage: UNK
     Route: 048
  8. VITAMIN B12                        /00056201/ [Concomitant]
     Dosage: UNK
     Route: 048
  9. LOPRESSOR [Concomitant]
     Dosage: UNK
     Route: 048
  10. MINITRAN                           /00003201/ [Concomitant]
     Dosage: UNK
     Route: 062
  11. NITROGLYCERIN [Concomitant]
     Dosage: UNK
     Route: 060
  12. SENOKOT [Concomitant]
     Dosage: UNK
     Route: 048
  13. ZOCOR [Concomitant]
     Dosage: UNK
     Route: 048
  14. VITAMIN E                          /00110501/ [Concomitant]
     Dosage: UNK
     Route: 048

REACTIONS (4)
  - DYSPNOEA EXERTIONAL [None]
  - NEUROPATHY PERIPHERAL [None]
  - RASH [None]
  - SERUM FERRITIN INCREASED [None]
